FAERS Safety Report 4599941-4 (Version None)
Quarter: 2005Q1

REPORT INFORMATION
  Report Type: 
  Country: None (occurrence: None)
  Receive Date: 20050307
  Receipt Date: 20050225
  Transmission Date: 20050727
  Serious: Yes (Other)
  Sender: FDA-Public Use
  Company Number: US-MERCK-0502USA03541

PATIENT
  Age: 70 Year
  Sex: Male

DRUGS (9)
  1. ZOCOR [Suspect]
     Route: 048
     Dates: start: 19980101, end: 20050201
  2. ASPIRIN [Concomitant]
     Route: 065
  3. FISH OIL (UNSPECIFIED) [Concomitant]
     Route: 065
  4. ATENOLOL [Concomitant]
     Route: 065
  5. FOLIC ACID [Concomitant]
     Route: 065
  6. BENAZEPRIL HYDROCHLORIDE [Concomitant]
     Route: 065
  7. LECITHIN [Concomitant]
     Route: 065
  8. CLONIDINE [Concomitant]
     Route: 065
  9. NITROGLYCERIN [Concomitant]
     Route: 065

REACTIONS (2)
  - CEREBROVASCULAR ACCIDENT [None]
  - TREMOR [None]
